FAERS Safety Report 7958939-6 (Version None)
Quarter: 2011Q4

REPORT INFORMATION
  Report Type: 
  Country: None (occurrence: None)
  Receive Date: 20111130
  Receipt Date: 20111121
  Transmission Date: 20120403
  Serious: Yes (Other)
  Sender: FDA-Public Use
  Company Number: TPA2011A07677

PATIENT
  Age: 70 Year
  Sex: Male
  Weight: 80.7403 kg

DRUGS (1)
  1. ACTOS [Suspect]
     Indication: TYPE 2 DIABETES MELLITUS
     Dosage: 30 MG, 1 IN 1 D
     Dates: start: 20050923, end: 20111017

REACTIONS (1)
  - BLADDER CANCER [None]
